FAERS Safety Report 10166861 (Version 1)
Quarter: 2014Q2

REPORT INFORMATION
  Report Type: Spontaneous
  Country: US (occurrence: None)
  Receive Date: 20140509
  Receipt Date: 20140509
  Transmission Date: 20141212
  Serious: Yes (Hospitalization)
  Sender: FDA-Public Use
  Company Number: None

PATIENT
  Age: 60 Year
  Sex: Male
  Weight: 80.83 kg

DRUGS (14)
  1. CETUXIMAB [Suspect]
     Indication: HEAD AND NECK CANCER
     Dates: start: 20140501, end: 20140501
  2. CETUXIMAB [Suspect]
     Indication: METASTASIS
     Dates: start: 20140501, end: 20140501
  3. PAZOPANIB [Suspect]
     Indication: HEAD AND NECK CANCER
     Dates: start: 20140501, end: 20140507
  4. PAZOPANIB [Suspect]
     Indication: METASTASIS
     Dates: start: 20140501, end: 20140507
  5. ABILIFY [Concomitant]
  6. ASPIRIN [Concomitant]
  7. CYMBALTA [Concomitant]
  8. HYDROCHLOROTHIAZIDE [Concomitant]
  9. MELOXICAM [Concomitant]
  10. MIRALAX [Concomitant]
  11. POTASSIUM [Concomitant]
  12. SERTRALINE [Concomitant]
  13. VITAMINS [Concomitant]
  14. STOOL SOFTENER [Concomitant]

REACTIONS (8)
  - Chest pain [None]
  - Palpitations [None]
  - Pain [None]
  - Hypotension [None]
  - Flushing [None]
  - Asthenia [None]
  - Dizziness [None]
  - Myocardial infarction [None]
